FAERS Safety Report 9370855 (Version 7)
Quarter: 2016Q1

REPORT INFORMATION
  Report Type: Report from Study
  Country: JP (occurrence: JP)
  Receive Date: 20130626
  Receipt Date: 20160310
  Transmission Date: 20160526
  Serious: Yes (Life-Threatening, Hospitalization)
  Sender: FDA-Public Use
  Company Number: JP-NOVOPROD-381315

PATIENT
  Age: 3 Year
  Sex: Male
  Weight: 11 kg

DRUGS (2)
  1. NORDITROPIN [Suspect]
     Active Substance: SOMATROPIN
     Indication: SMALL FOR DATES BABY
     Dosage: UNK
     Route: 058
     Dates: start: 20121213
  2. NORDITROPIN [Suspect]
     Active Substance: SOMATROPIN
     Dosage: 3.6MG/WEEK (0.6MG X6)
     Route: 058
     Dates: start: 20130419, end: 20130619

REACTIONS (2)
  - Tumour necrosis [Recovering/Resolving]
  - Hepatoblastoma [Recovering/Resolving]

NARRATIVE: CASE EVENT DATE: 20130619
